FAERS Safety Report 24248787 (Version 1)
Quarter: 2024Q3

REPORT INFORMATION
  Report Type: Spontaneous
  Country: ES (occurrence: ES)
  Receive Date: 20240826
  Receipt Date: 20240826
  Transmission Date: 20241017
  Serious: Yes (Hospitalization, Other)
  Sender: CHEPLAPHARM
  Company Number: None

PATIENT
  Age: 68 Year
  Sex: Female
  Weight: 50 kg

DRUGS (9)
  1. CAPECITABINE [Suspect]
     Active Substance: CAPECITABINE
     Indication: Adenocarcinoma of colon
     Dosage: 1ST CYCLE 02/07/2024 2ND CYCLE 22/07/2024 1300MG/12H X 14 DAYS
     Route: 048
     Dates: start: 20240702, end: 20240807
  2. CAPECITABINE [Suspect]
     Active Substance: CAPECITABINE
     Indication: Adenocarcinoma of colon
     Dosage: 1ST CYCLE 02/07/2024 2ND CYCLE 22/07/2024 1300MG/12H X 14 DAYS
     Route: 048
     Dates: start: 20240722
  3. OXALIPLATIN [Suspect]
     Active Substance: OXALIPLATIN
     Indication: Adenocarcinoma of colon
     Dosage: 1ST CYCLE 02/07/2024 2ND CYCLE 22/07/2024
     Route: 042
     Dates: start: 20240702, end: 20240807
  4. OXALIPLATIN [Suspect]
     Active Substance: OXALIPLATIN
     Indication: Adenocarcinoma of colon
     Dosage: 1ST CYCLE 02/07/2024 2ND CYCLE 22/07/2024
     Route: 042
     Dates: start: 20240722
  5. ACETAMINOPHEN [Suspect]
     Active Substance: ACETAMINOPHEN
     Indication: Abdominal pain upper
     Route: 048
     Dates: start: 20240801
  6. ACETAMINOPHEN [Suspect]
     Active Substance: ACETAMINOPHEN
     Indication: Abdominal pain upper
     Dosage: SOLUTION/ORAL SUSPENSION 40 SACHETS
     Route: 048
  7. FAMOTIDINE [Concomitant]
     Active Substance: FAMOTIDINE
     Dosage: 28 TABLETS
  8. LOPERAMIDE HYDROCHLORIDE [Concomitant]
     Active Substance: LOPERAMIDE HYDROCHLORIDE
     Dosage: HARD CAPSULES, 20?CAPSULES
  9. DEXAMETHASONE [Concomitant]
     Active Substance: DEXAMETHASONE
     Dosage: TABLETS, 30 TABLETS

REACTIONS (1)
  - Hepatitis acute [Recovering/Resolving]

NARRATIVE: CASE EVENT DATE: 20240806
